FAERS Safety Report 5060786-2 (Version None)
Quarter: 2006Q3

REPORT INFORMATION
  Report Type: 
  Country: None (occurrence: None)
  Receive Date: 20060719
  Receipt Date: 20060719
  Transmission Date: 20061208
  Serious: No
  Sender: FDA-Public Use
  Company Number: None

PATIENT
  Sex: Male
  Weight: 95.5 kg

DRUGS (1)
  1. FLEETS PHOSPHASODA  FLEETS [Suspect]
     Indication: COLONOSCOPY
     Dosage: 3OZ ONE TIME PO
     Route: 048
     Dates: start: 20060515, end: 20060515

REACTIONS (1)
  - RENAL FAILURE ACUTE [None]
